FAERS Safety Report 9530853 (Version 1)
Quarter: 2013Q3

REPORT INFORMATION
  Report Type: Spontaneous
  Country: US (occurrence: None)
  Receive Date: 20130916
  Receipt Date: 20130916
  Transmission Date: 20140515
  Serious: Yes (Hospitalization)
  Sender: FDA-Public Use
  Company Number: None

PATIENT
  Age: 50 Year
  Sex: Male
  Weight: 80.1 kg

DRUGS (2)
  1. CYTARABINE [Suspect]
     Dates: end: 20130825
  2. IDARUBICIN [Suspect]
     Dates: end: 20130823

REACTIONS (8)
  - Febrile neutropenia [None]
  - Renal failure acute [None]
  - Systemic inflammatory response syndrome [None]
  - Acute respiratory failure [None]
  - Hypotension [None]
  - Pulmonary alveolar haemorrhage [None]
  - Klebsiella sepsis [None]
  - Bacillus test positive [None]
